FAERS Safety Report 4912888-6 (Version None)
Quarter: 2006Q1

REPORT INFORMATION
  Report Type: 
  Country: None (occurrence: None)
  Receive Date: 20060210
  Receipt Date: 20060201
  Transmission Date: 20060701
  Serious: Yes (Other)
  Sender: FDA-Public Use
  Company Number: B0376805A

PATIENT
  Sex: Female

DRUGS (2)
  1. PAXIL [Suspect]
     Dates: start: 20020301
  2. DIAZEPAM [Concomitant]

REACTIONS (5)
  - AGGRESSION [None]
  - DEPRESSION [None]
  - DRUG WITHDRAWAL SYNDROME [None]
  - PANIC ATTACK [None]
  - REFUSAL OF TREATMENT BY PATIENT [None]
